FAERS Safety Report 4511921-3 (Version None)
Quarter: 2004Q4

REPORT INFORMATION
  Report Type: 
  Country: None (occurrence: None)
  Receive Date: 20041129
  Receipt Date: 20041118
  Transmission Date: 20050328
  Serious: Yes (Hospitalization)
  Sender: FDA-Public Use
  Company Number: ES-MERCK-0411ESP00028

PATIENT
  Age: 56 Year
  Sex: Male

DRUGS (1)
  1. VIOXX [Suspect]
     Indication: LOCALISED OSTEOARTHRITIS
     Route: 048
     Dates: start: 20040101, end: 20040930

REACTIONS (4)
  - DYSPHAGIA [None]
  - HYPOPHARYNGEAL NEOPLASM [None]
  - LARYNGEAL NEOPLASM [None]
  - ODYNOPHAGIA [None]
